FAERS Safety Report 7605526-5 (Version None)
Quarter: 2011Q3

REPORT INFORMATION
  Report Type: 
  Country: None (occurrence: None)
  Receive Date: 20110713
  Receipt Date: 20110707
  Transmission Date: 20111222
  Serious: No
  Sender: FDA-Public Use
  Company Number: US-PFIZER INC-2011154074

PATIENT
  Sex: Female

DRUGS (1)
  1. IBUPROFEN (ADVIL) [Suspect]
     Dosage: 200 MG, EVERY FIVE TO SIX HOURS
     Route: 048
     Dates: start: 20110601

REACTIONS (1)
  - CONSTIPATION [None]
